FAERS Safety Report 9276631 (Version 3)
Quarter: 2013Q3

REPORT INFORMATION
  Report Type: Spontaneous
  Country: IT (occurrence: IT)
  Receive Date: 20130507
  Receipt Date: 20130911
  Transmission Date: 20140515
  Serious: Yes (Hospitalization)
  Sender: FDA-Public Use
  Company Number: PHHY2013IT043356

PATIENT
  Sex: Male

DRUGS (2)
  1. LORAZEPAM [Suspect]
  2. DAPAROX (PAROXETINE) [Concomitant]

REACTIONS (2)
  - Somnolence [Unknown]
  - Toxicity to various agents [Unknown]
